FAERS Safety Report 6606497-0 (Version None)
Quarter: 2010Q1

REPORT INFORMATION
  Report Type: 
  Country: None (occurrence: None)
  Receive Date: 20100226
  Receipt Date: 20100219
  Transmission Date: 20100710
  Serious: Yes (Hospitalization)
  Sender: FDA-Public Use
  Company Number: PHHO2010HU02832

PATIENT

DRUGS (5)
  1. CGS 20267 T30748+TAB [Suspect]
     Indication: BREAST CANCER
     Dosage: 2.5 MG, QD
     Route: 048
     Dates: start: 20080428
  2. BETALOC ZOK [Concomitant]
  3. COVEREX [Concomitant]
  4. ASPIRIN [Concomitant]
  5. MINIPRESS [Concomitant]

REACTIONS (5)
  - BACK PAIN [None]
  - CONCUSSION [None]
  - FALL [None]
  - OSTEOPOROTIC FRACTURE [None]
  - SPINAL FRACTURE [None]
